FAERS Safety Report 8857695 (Version 1)
Quarter: 2012Q4

REPORT INFORMATION
  Report Type: 
  Country: US (occurrence: US)
  Receive Date: 20121024
  Receipt Date: 20121024
  Transmission Date: 20130627
  Serious: Yes (Hospitalization)
  Sender: FDA-Public Use
  Company Number: US-B.I. PHARMACEUTICALS,INC./RIDGEFIELD-2012-BP-26032BP

PATIENT
  Age: 71 Year
  Sex: Female

DRUGS (1)
  1. AGGRENOX [Suspect]
     Route: 048
     Dates: start: 20121016

REACTIONS (5)
  - Headache [Recovered/Resolved]
  - Aphasia [Not Recovered/Not Resolved]
  - Hypertension [Recovered/Resolved]
  - Balance disorder [Not Recovered/Not Resolved]
  - Ocular hyperaemia [Recovered/Resolved]
